FAERS Safety Report 7065567-6 (Version None)
Quarter: 2010Q4

REPORT INFORMATION
  Report Type: 
  Country: None (occurrence: None)
  Receive Date: 20101027
  Receipt Date: 20101022
  Transmission Date: 20110411
  Serious: Yes (Other)
  Sender: FDA-Public Use
  Company Number: US-BRISTOL-MYERS SQUIBB COMPANY-15347735

PATIENT
  Age: 69 Year
  Sex: Female
  Weight: 58 kg

DRUGS (4)
  1. ERBITUX [Suspect]
     Indication: NON-SMALL CELL LUNG CANCER
     Dosage: 400MG/M2 ON DAY 1 250MG/M2 WEEKLY FOR 6 WEEKS AND ALSO FOR 9 WEEKS,DELAY 7DAYS
     Dates: start: 20100720, end: 20100928
  2. CARBOPLATIN [Suspect]
     Indication: NON-SMALL CELL LUNG CANCER
     Dosage: DELAY:7DAYS AUC=2 WEEKLY FOR 6 WEEKS AUC=6 ON DAY 71 AND 92
     Dates: start: 20100720, end: 20100928
  3. TAXOL [Suspect]
     Indication: NON-SMALL CELL LUNG CANCER
     Dosage: DELAY:7DAYS 45MG/M2 WEEKLY FOR 6 WEEKS 200MG/M2 ON DAY 71 AND 92
     Dates: start: 20100720, end: 20100928
  4. RADIATION THERAPY [Suspect]
     Indication: NON-SMALL CELL LUNG CANCER
     Dosage: 1 DF=60 GY,5 TIMES A WEEK FOR 6 WEEKS NO.OF FRACTIONS:30
     Dates: start: 20100720, end: 20100830

REACTIONS (1)
  - THROMBOSIS [None]
